FAERS Safety Report 14902595 (Version 1)
Quarter: 2018Q2

REPORT INFORMATION
  Report Type: Spontaneous
  Country: US (occurrence: US)
  Receive Date: 20180516
  Receipt Date: 20180516
  Transmission Date: 20180711
  Serious: No
  Sender: FDA-Public Use
  Company Number: US-SA-2017SA083615

PATIENT
  Age: 65 Year
  Sex: Male

DRUGS (3)
  1. LANTUS [Suspect]
     Active Substance: INSULIN GLARGINE
     Indication: TYPE 2 DIABETES MELLITUS
     Route: 051
     Dates: start: 201704
  2. INSULIN [Concomitant]
     Active Substance: INSULIN NOS
  3. LANTUS [Suspect]
     Active Substance: INSULIN GLARGINE
     Indication: TYPE 2 DIABETES MELLITUS
     Dosage: DOSE:150 UNIT(S)
     Route: 051
     Dates: start: 2017

REACTIONS (4)
  - Therapeutic response decreased [Unknown]
  - Blood glucose decreased [Unknown]
  - Product use issue [Unknown]
  - Night sweats [Unknown]

NARRATIVE: CASE EVENT DATE: 2017
